FAERS Safety Report 5493867-X (Version None)
Quarter: 2007Q4

REPORT INFORMATION
  Report Type: 
  Country: None (occurrence: None)
  Receive Date: 20071019
  Receipt Date: 20071015
  Transmission Date: 20080405
  Serious: Yes (Life-Threatening)
  Sender: FDA-Public Use
  Company Number: VISP-PR-0710S-0456

PATIENT
  Age: 31 Year
  Sex: Female

DRUGS (1)
  1. VISIPAQUE [Suspect]
     Indication: BRAIN MASS
     Dosage: 150 ML, SINGLE DOSE, I.V.
     Route: 042
     Dates: start: 20071010, end: 20071010

REACTIONS (2)
  - RESPIRATORY ARREST [None]
  - RESPIRATORY DISTRESS [None]
